FAERS Safety Report 5351697-3 (Version None)
Quarter: 2007Q2

REPORT INFORMATION
  Report Type: 
  Country: None (occurrence: None)
  Receive Date: 20070518
  Receipt Date: 20070215
  Transmission Date: 20071010
  Serious: No
  Sender: FDA-Public Use
  Company Number: TPA2007A00391

PATIENT
  Age: 62 Year
  Sex: Female
  Weight: 54.4316 kg

DRUGS (4)
  1. ROZEREM [Suspect]
     Indication: INSOMNIA
     Dosage: QHS, PER ORAL
     Route: 048
     Dates: start: 20070212
  2. TEMAZEPAM [Concomitant]
  3. HYDROCHLOROTHIAZIDE [Concomitant]
  4. ATENOLOL [Concomitant]

REACTIONS (3)
  - FATIGUE [None]
  - INITIAL INSOMNIA [None]
  - MIDDLE INSOMNIA [None]
